FAERS Safety Report 6278478-0 (Version None)
Quarter: 2009Q3

REPORT INFORMATION
  Report Type: 
  Country: None (occurrence: None)
  Receive Date: 20090721
  Receipt Date: 20090703
  Transmission Date: 20100115
  Serious: Yes (Other)
  Sender: FDA-Public Use
  Company Number: 20090279

PATIENT
  Age: 41 Year
  Sex: Female

DRUGS (6)
  1. VENOFER [Suspect]
     Indication: ANAEMIA
     Dosage: 100 MG, ONCE
     Route: 041
     Dates: start: 20090520, end: 20090520
  2. PROPRANOLOL HYDROCHLORIDE [Concomitant]
  3. PERINDOPRIL ARGININE [Concomitant]
  4. INDAPAMIDE [Concomitant]
  5. PAROXETINE HYDROCHLORIDE HEMIHYDRATE [Concomitant]
  6. ETORICOXIB [Concomitant]

REACTIONS (4)
  - BURNING SENSATION [None]
  - DIZZINESS [None]
  - RASH MACULAR [None]
  - RASH PAPULAR [None]
